FAERS Safety Report 8092945-9 (Version None)
Quarter: 2012Q1

REPORT INFORMATION
  Report Type: 
  Country: None (occurrence: None)
  Receive Date: 20120131
  Receipt Date: 20120120
  Transmission Date: 20120608
  Serious: Yes (Hospitalization, Other)
  Sender: FDA-Public Use
  Company Number: US-BAYER-200943132NA

PATIENT
  Sex: Female
  Weight: 88 kg

DRUGS (4)
  1. ASCORBIC ACID [Concomitant]
     Dosage: UNK
     Dates: start: 20030101
  2. YASMIN [Suspect]
     Dosage: UNK
     Dates: start: 20031001, end: 20031101
  3. DROSPIRENONE AND ETHINYL ESTRADIOL [Suspect]
     Dosage: UNK
     Route: 048
     Dates: start: 20031001, end: 20031101
  4. YAZ [Suspect]
     Dosage: UNK
     Route: 048
     Dates: start: 20031001, end: 20031101

REACTIONS (5)
  - DEEP VEIN THROMBOSIS [None]
  - PULMONARY EMBOLISM [None]
  - LOSS OF CONSCIOUSNESS [None]
  - ASTHENIA [None]
  - PALPITATIONS [None]
